FAERS Safety Report 11286348 (Version 1)
Quarter: 2015Q3

REPORT INFORMATION
  Report Type: Spontaneous
  Country: US (occurrence: None)
  Receive Date: 20150717
  Receipt Date: 20150717
  Transmission Date: 20151125
  Serious: Yes (Hospitalization)
  Sender: FDA-Public Use
  Company Number: US-000730

PATIENT
  Age: 68 Year
  Sex: Female
  Weight: 50.8 kg

DRUGS (17)
  1. SUMATRIPTAN. [Concomitant]
     Active Substance: SUMATRIPTAN
  2. WARFARIN [Concomitant]
     Active Substance: WARFARIN
  3. SOLUTIONS FOR PARENTERAL NUTRITION [Concomitant]
     Active Substance: AMINO ACIDS\DEXTROSE\ELECTROLYTES NOS
  4. ONDANSETRON [Concomitant]
     Active Substance: ONDANSETRON
  5. LORTAB [Concomitant]
     Active Substance: ACETAMINOPHEN\HYDROCODONE BITARTRATE
  6. AMINOPHENAZONE W/BUTALBITAL/CAFFEINE [Concomitant]
  7. LOMOTIL [Concomitant]
     Active Substance: ATROPINE SULFATE\DIPHENOXYLATE HYDROCHLORIDE
  8. TRAZODONE [Concomitant]
     Active Substance: TRAZODONE HYDROCHLORIDE
  9. NYSTATIN. [Concomitant]
     Active Substance: NYSTATIN
  10. OMEPRAZOLE. [Concomitant]
     Active Substance: OMEPRAZOLE
  11. FLUOXETINE [Concomitant]
     Active Substance: FLUOXETINE\FLUOXETINE HYDROCHLORIDE
  12. ESTRADIOL. [Concomitant]
     Active Substance: ESTRADIOL
  13. ROBAXIN [Concomitant]
     Active Substance: METHOCARBAMOL
  14. LYRICA [Concomitant]
     Active Substance: PREGABALIN
  15. LORAZEPAM. [Concomitant]
     Active Substance: LORAZEPAM
  16. GATTEX [Suspect]
     Active Substance: TEDUGLUTIDE\WATER
     Indication: SHORT-BOWEL SYNDROME
     Dates: start: 201304
  17. IMITREX DF [Concomitant]

REACTIONS (21)
  - Weight increased [None]
  - Drooling [None]
  - Pruritus generalised [None]
  - Diarrhoea [None]
  - Ear discomfort [None]
  - Salivary hypersecretion [None]
  - Oropharyngeal pain [None]
  - Nausea [None]
  - Gastrointestinal pain [None]
  - Cough [None]
  - Respiratory disorder [None]
  - Erythema [None]
  - Eyelid oedema [None]
  - Nasopharyngitis [None]
  - Peripheral swelling [None]
  - Eructation [None]
  - Headache [None]
  - Injection site reaction [None]
  - Fluid overload [None]
  - Swelling face [None]
  - Abdominal distension [None]
